FAERS Safety Report 7085291-3 (Version None)
Quarter: 2010Q4

REPORT INFORMATION
  Report Type: 
  Country: None (occurrence: None)
  Receive Date: 20101105
  Receipt Date: 20101029
  Transmission Date: 20110411
  Serious: Yes (Death, Other)
  Sender: FDA-Public Use
  Company Number: GB-PFIZER INC-2010116344

PATIENT
  Age: 70 Year
  Sex: Female
  Weight: 26.4 kg

DRUGS (12)
  1. FLUCONAZOLE [Suspect]
     Indication: SYSTEMIC CANDIDA
     Dosage: UNK
     Route: 048
     Dates: start: 20100111
  2. WARFARIN [Interacting]
     Dosage: UNK
     Route: 048
  3. CALPOL [Concomitant]
     Route: 048
  4. CODEINE PHOSPHATE [Concomitant]
     Route: 048
  5. COD LIVER OIL/TOCOPHERYL ACETATE [Concomitant]
     Route: 048
  6. ASCORBIC ACID [Concomitant]
     Route: 048
  7. VITAMIN D [Concomitant]
     Route: 048
  8. VITAMIN E [Concomitant]
     Route: 048
  9. ATORVASTATIN [Concomitant]
  10. AMPICILLIN SODIUM/SULBACTAM SODIUM [Concomitant]
     Indication: LOWER RESPIRATORY TRACT INFECTION
  11. AMPICILLIN SODIUM/SULBACTAM SODIUM [Concomitant]
     Indication: COUGH
  12. FUROSEMIDE [Concomitant]

REACTIONS (18)
  - AORTIC ARTERIOSCLEROSIS [None]
  - ARTERIOSCLEROSIS [None]
  - ARTERIOSCLEROSIS CORONARY ARTERY [None]
  - CEREBRAL ARTERIOSCLEROSIS [None]
  - CEREBRAL HAEMORRHAGE [None]
  - CONTUSION [None]
  - DRUG INTERACTION [None]
  - DRUG LEVEL DECREASED [None]
  - EXCORIATION [None]
  - HAEMARTHROSIS [None]
  - HAEMORRHAGE [None]
  - HEADACHE [None]
  - HEPATIC FIBROSIS [None]
  - INTERNATIONAL NORMALISED RATIO INCREASED [None]
  - RENAL ARTERY STENOSIS [None]
  - SCAR [None]
  - VIITH NERVE PARALYSIS [None]
  - VOMITING [None]
